FAERS Safety Report 11529695 (Version 3)
Quarter: 2019Q2

REPORT INFORMATION
  Report Type: Spontaneous
  Country: IT (occurrence: IT)
  Receive Date: 20150921
  Receipt Date: 20190425
  Transmission Date: 20190711
  Serious: Yes (Hospitalization)
  Sender: FDA-Public Use
  Company Number: IT-MYLANLABS-2015M1030734

PATIENT
  Age: 30 Year
  Sex: Male

DRUGS (8)
  1. SERTRALINE [Suspect]
     Active Substance: SERTRALINE HYDROCHLORIDE
     Dosage: 900 MG, TOTAL
     Route: 048
     Dates: start: 20150830, end: 20150830
  2. SERTRALINE [Suspect]
     Active Substance: SERTRALINE HYDROCHLORIDE
     Dosage: 75 MG, UNK
     Route: 048
     Dates: start: 20150101
  3. DEPAKIN [Suspect]
     Active Substance: VALPROATE SODIUM
     Indication: OBSESSIVE-COMPULSIVE DISORDER
     Dosage: 500 MILLIGRAM, QD
     Route: 048
     Dates: start: 20140101
  4. SERTRALINE [Suspect]
     Active Substance: SERTRALINE HYDROCHLORIDE
     Indication: DEPRESSION
     Dosage: 75 MG, UNK
     Route: 048
     Dates: start: 20140101
  5. DEPAKIN [Suspect]
     Active Substance: VALPROATE SODIUM
     Dosage: 7.5 G, TOTAL
     Route: 048
     Dates: start: 20150830, end: 20150830
  6. ABILIFY [Suspect]
     Active Substance: ARIPIPRAZOLE
     Dosage: 50 MG, TOTAL
     Route: 048
     Dates: start: 20150830, end: 20150830
  7. SERTRALINE [Suspect]
     Active Substance: SERTRALINE HYDROCHLORIDE
     Dosage: 75 MILLIGRAM, QD
     Route: 048
     Dates: start: 20150101
  8. ABILIFY [Suspect]
     Active Substance: ARIPIPRAZOLE
     Indication: SCHIZOTYPAL PERSONALITY DISORDER
     Dosage: 5 MILLIGRAM, QD
     Route: 048
     Dates: start: 20150101

REACTIONS (7)
  - Hyperammonaemia [Recovering/Resolving]
  - Off label use [Unknown]
  - Drug abuse [Unknown]
  - Intentional overdose [Recovered/Resolved]
  - Psychomotor retardation [Recovered/Resolved]
  - Vomiting [Recovered/Resolved]
  - Nausea [Recovered/Resolved]

NARRATIVE: CASE EVENT DATE: 20150830
